FAERS Safety Report 13340608 (Version 3)
Quarter: 2017Q2

REPORT INFORMATION
  Report Type: Spontaneous
  Country: US (occurrence: US)
  Receive Date: 20170316
  Receipt Date: 20170523
  Transmission Date: 20170830
  Serious: Yes (Other)
  Sender: FDA-Public Use
  Company Number: US-TEVA-749404ACC

PATIENT
  Age: 40 Year
  Sex: Female
  Weight: 79.45 kg

DRUGS (2)
  1. PARAGARD T 380A [Suspect]
     Active Substance: COPPER
     Indication: CONTRACEPTION
     Dates: start: 20170306, end: 20170308
  2. PARAGARD T 380A [Suspect]
     Active Substance: COPPER
     Dates: start: 20170404

REACTIONS (3)
  - Device dislocation [Recovered/Resolved]
  - Muscle spasms [Unknown]
  - Vaginal haemorrhage [Unknown]

NARRATIVE: CASE EVENT DATE: 20170306
